FAERS Safety Report 18769398 (Version 2)
Quarter: 2021Q1

REPORT INFORMATION
  Report Type: Spontaneous
  Country: DE (occurrence: DE)
  Receive Date: 20210121
  Receipt Date: 20210217
  Transmission Date: 20210419
  Serious: Yes (Hospitalization, Other)
  Sender: FDA-Public Use
  Company Number: NVSC2021DE009859

PATIENT
  Sex: Female
  Weight: 72 kg

DRUGS (7)
  1. FULVESTRANT 250 MG SOLUTION FOR INJECTION IN PRE?FILLED SYRINGE [Suspect]
     Active Substance: FULVESTRANT
     Indication: BREAST CANCER
  2. DENOSUMAB [Concomitant]
     Active Substance: DENOSUMAB
     Indication: METASTASES TO BONE
     Dosage: UNK (120 MG / 1.7 ML)
     Route: 065
     Dates: start: 2020
  3. CALCIUM GLUCONATE. [Concomitant]
     Active Substance: CALCIUM GLUCONATE
     Indication: HYPOCALCAEMIA
     Dosage: UNK (150 MG / 5MG)
     Route: 048
     Dates: start: 2020
  4. CANDESARTAN. [Concomitant]
     Active Substance: CANDESARTAN
     Indication: HYPERTENSION
     Dosage: 8 MG
     Route: 048
     Dates: start: 202006
  5. TRIDIN [Concomitant]
     Indication: HYPOCALCAEMIA
     Dosage: UNK, QD (150 MG / 5MG)
     Route: 048
     Dates: start: 2020
  6. FULVESTRANT 250 MG SOLUTION FOR INJECTION IN PRE?FILLED SYRINGE [Suspect]
     Active Substance: FULVESTRANT
     Indication: METASTASES TO BONE
     Dosage: UNK (2 X 250MG/5ML)
     Route: 030
     Dates: start: 20201116, end: 20201202
  7. LEVOTHYROXINE SODIUM. [Concomitant]
     Active Substance: LEVOTHYROXINE SODIUM
     Indication: HYPOTHYROIDISM
     Dosage: 137 UG
     Route: 048

REACTIONS (7)
  - Papilloedema [Not Recovered/Not Resolved]
  - Blood glucose increased [Recovered/Resolved]
  - Head discomfort [Recovering/Resolving]
  - Headache [Not Recovered/Not Resolved]
  - Intracranial pressure increased [Not Recovered/Not Resolved]
  - Blood glucose increased [Recovering/Resolving]
  - Visual impairment [Recovering/Resolving]

NARRATIVE: CASE EVENT DATE: 2020
